FAERS Safety Report 11877702 (Version 3)
Quarter: 2016Q1

REPORT INFORMATION
  Report Type: Spontaneous
  Country: US (occurrence: US)
  Receive Date: 20151230
  Receipt Date: 20160315
  Transmission Date: 20160526
  Serious: Yes (Hospitalization)
  Sender: FDA-Public Use
  Company Number: US-BEH-2015057376

PATIENT
  Age: 14 Year
  Sex: Male
  Weight: 64 kg

DRUGS (11)
  1. EPIPEN [Concomitant]
     Active Substance: EPINEPHRINE
  2. AZITHROMYCIN ANHYDROUS. [Concomitant]
     Active Substance: AZITHROMYCIN ANHYDROUS
  3. DIPHENHYDRAMINE. [Concomitant]
     Active Substance: DIPHENHYDRAMINE
  4. IBUPROFEN. [Concomitant]
     Active Substance: IBUPROFEN
  5. CHILDRENS TYLENOL [Concomitant]
     Active Substance: ACETAMINOPHEN
  6. CHILD CHEW MULTIVITAMIN [Concomitant]
  7. HIZENTRA [Suspect]
     Active Substance: HUMAN IMMUNOGLOBULIN G
     Indication: IMMUNODEFICIENCY COMMON VARIABLE
     Dosage: START DATE: 2009
     Route: 058
  8. LIDOCAINE/PRILOCAINE [Concomitant]
  9. NASONEX [Concomitant]
     Active Substance: MOMETASONE FUROATE
  10. ALBUTEROL. [Concomitant]
     Active Substance: ALBUTEROL
  11. XOPENEX [Concomitant]
     Active Substance: LEVALBUTEROL HYDROCHLORIDE

REACTIONS (2)
  - Clavicle fracture [Unknown]
  - Sports injury [Unknown]

NARRATIVE: CASE EVENT DATE: 20151031
